FAERS Safety Report 24283601 (Version 1)
Quarter: 2024Q3

REPORT INFORMATION
  Report Type: Spontaneous
  Country: GB (occurrence: GB)
  Receive Date: 20240904
  Receipt Date: 20240904
  Transmission Date: 20241017
  Serious: Yes (Life-Threatening, Hospitalization, Other)
  Sender: AMGEN
  Company Number: None

PATIENT
  Age: 63 Year
  Sex: Male

DRUGS (1)
  1. ENBREL [Suspect]
     Active Substance: BENZYL ALCOHOL\ETANERCEPT
     Indication: Rheumatoid arthritis
     Dosage: UNK
     Route: 065
     Dates: end: 202406

REACTIONS (10)
  - Respiratory failure [Unknown]
  - Abscess [Not Recovered/Not Resolved]
  - Acute pulmonary oedema [Unknown]
  - Peripheral swelling [Unknown]
  - Sepsis [Unknown]
  - Osteomyelitis [Unknown]
  - Intervertebral discitis [Unknown]
  - Psoas abscess [Unknown]
  - Klebsiella bacteraemia [Unknown]
  - Staphylococcal infection [Unknown]

NARRATIVE: CASE EVENT DATE: 20240719
